FAERS Safety Report 9600300 (Version 1)
Quarter: 2013Q4

REPORT INFORMATION
  Report Type: Spontaneous
  Country: US (occurrence: US)
  Receive Date: 20131004
  Receipt Date: 20131004
  Transmission Date: 20140711
  Serious: No
  Sender: FDA-Public Use
  Company Number: US-AMGEN-USASP2013033946

PATIENT
  Age: 62 Year
  Sex: Female
  Weight: 155 kg

DRUGS (6)
  1. ENBREL [Suspect]
     Indication: PRODUCT USED FOR UNKNOWN INDICATION
     Dosage: 50 MG, QWK
     Route: 058
  2. NAPROXEN [Concomitant]
     Dosage: 500 MG, UNK
  3. LISINOPRIL [Concomitant]
     Dosage: 10 MG, UNK
  4. TOPROL [Concomitant]
     Dosage: 25 MG, UNK
  5. LEVOXYL [Concomitant]
     Dosage: 100 MUG, UNK
  6. HYDROCHLOROTHIAZIDE WITH TRIAMTERENE [Concomitant]
     Dosage: 50 - 75 MG, UNK

REACTIONS (2)
  - Drug ineffective [Unknown]
  - Laboratory test abnormal [Unknown]
